FAERS Safety Report 17781633 (Version 1)
Quarter: 2020Q2

REPORT INFORMATION
  Report Type: Spontaneous
  Country: IN (occurrence: IN)
  Receive Date: 20200514
  Receipt Date: 20200514
  Transmission Date: 20200714
  Serious: Yes (Life-Threatening)
  Sender: FDA-Public Use
  Company Number: IN-PFIZER INC-2020192139

PATIENT
  Sex: Male

DRUGS (8)
  1. VANCOMYCIN [Suspect]
     Active Substance: VANCOMYCIN
     Indication: SEPSIS NEONATAL
     Dosage: UNK
     Route: 042
  2. MEROPENEM. [Suspect]
     Active Substance: MEROPENEM
     Indication: SEPSIS NEONATAL
     Dosage: UNK
     Route: 042
  3. AMIKACIN. [Suspect]
     Active Substance: AMIKACIN
     Indication: SEPSIS NEONATAL
     Dosage: UNK
     Route: 042
  4. CEFOTAXIME [Suspect]
     Active Substance: CEFOTAXIME SODIUM
     Indication: THROMBOCYTOPENIA
     Dosage: UNK
     Route: 042
  5. VANCOMYCIN [Suspect]
     Active Substance: VANCOMYCIN
     Indication: THROMBOCYTOPENIA
  6. AMIKACIN. [Suspect]
     Active Substance: AMIKACIN
     Indication: THROMBOCYTOPENIA
  7. CEFOTAXIME [Suspect]
     Active Substance: CEFOTAXIME SODIUM
     Indication: SEPSIS NEONATAL
  8. MEROPENEM. [Suspect]
     Active Substance: MEROPENEM
     Indication: THROMBOCYTOPENIA

REACTIONS (1)
  - Fungal sepsis [Unknown]
